FAERS Safety Report 16010532 (Version 1)
Quarter: 2019Q1

REPORT INFORMATION
  Report Type: Spontaneous
  Country: ES (occurrence: ES)
  Receive Date: 20190227
  Receipt Date: 20190227
  Transmission Date: 20190418
  Serious: Yes (Death)
  Sender: FDA-Public Use
  Company Number: ES-ROCHE-2272150

PATIENT
  Age: 78 Year
  Sex: Female

DRUGS (9)
  1. CAPECITABINE. [Suspect]
     Active Substance: CAPECITABINE
     Indication: GASTRIC CANCER
     Route: 065
     Dates: start: 20190124
  2. TRASTUZUMAB. [Suspect]
     Active Substance: TRASTUZUMAB
     Indication: GASTRIC CANCER
     Route: 042
     Dates: start: 20190124, end: 20190124
  3. ELIQUIS [Concomitant]
     Active Substance: APIXABAN
     Route: 065
  4. OXALIPLATINO [Suspect]
     Active Substance: OXALIPLATIN
     Indication: GASTRIC CANCER
     Route: 065
     Dates: start: 20190124
  5. BISOPROLOL [Concomitant]
     Active Substance: BISOPROLOL
     Route: 065
  6. ATORVASTATINA [Concomitant]
     Active Substance: ATORVASTATIN
     Route: 065
  7. PANTOPRAZOL [Concomitant]
     Active Substance: PANTOPRAZOLE SODIUM
     Route: 065
  8. RAMIPRIL. [Concomitant]
     Active Substance: RAMIPRIL
     Route: 065
  9. SEGURIL [Concomitant]
     Active Substance: FUROSEMIDE
     Route: 065

REACTIONS (5)
  - Diarrhoea [Fatal]
  - Nausea [Fatal]
  - Hypothermia [Fatal]
  - Acute kidney injury [Fatal]
  - Asthenia [Fatal]

NARRATIVE: CASE EVENT DATE: 20190124
